FAERS Safety Report 26081588 (Version 2)
Quarter: 2025Q4

REPORT INFORMATION
  Report Type: Spontaneous
  Country: EU (occurrence: EU)
  Receive Date: 20251124
  Receipt Date: 20251204
  Transmission Date: 20260117
  Serious: Yes (Other)
  Sender: REGENERON
  Company Number: EU-BAYER-2025A153629

PATIENT
  Age: 76 Year
  Sex: Female

DRUGS (20)
  1. EYLEA [Suspect]
     Active Substance: AFLIBERCEPT
     Indication: Product used for unknown indication
     Dosage: UNK-1ST DOSE, 40 MG/ML
  2. EYLEA [Suspect]
     Active Substance: AFLIBERCEPT
     Dosage: UNK-2ND DOSE, 40 MG/ML
  3. EYLEA [Suspect]
     Active Substance: AFLIBERCEPT
     Dosage: UNK-3RD DOSE, 40 MG/ML
  4. EYLEA [Suspect]
     Active Substance: AFLIBERCEPT
     Dosage: UNK-4TH DOSE,40 MG/ML
  5. EYLEA [Suspect]
     Active Substance: AFLIBERCEPT
     Dosage: UNK-5TH DOSE,40 MG/ML
  6. EYLEA [Suspect]
     Active Substance: AFLIBERCEPT
     Dosage: UNK-6TH DOSE,40 MG/ML
  7. EYLEA [Suspect]
     Active Substance: AFLIBERCEPT
     Dosage: UNK-7TH DOSE, 40 MG/ML
  8. EYLEA [Suspect]
     Active Substance: AFLIBERCEPT
     Dosage: UNK-8TH DOSE, 40 MG/ML
  9. EYLEA [Suspect]
     Active Substance: AFLIBERCEPT
     Dosage: UNK-9TH DOSE,40 MG/ML
  10. EYLEA [Suspect]
     Active Substance: AFLIBERCEPT
     Dosage: UNK-10TH DOSE,40 MG/ML
  11. EYLEA [Suspect]
     Active Substance: AFLIBERCEPT
     Dosage: UNK-11TH DOSE,40 MG/ML
  12. EYLEA [Suspect]
     Active Substance: AFLIBERCEPT
     Dosage: UNK-12TH DOSE,40 MG/ML
  13. EYLEA [Suspect]
     Active Substance: AFLIBERCEPT
     Dosage: UNK-13TH DOSE,40 MG/ML
  14. EYLEA [Suspect]
     Active Substance: AFLIBERCEPT
     Dosage: UNK-14TH DOSE,40 MG/ML
  15. EYLEA [Suspect]
     Active Substance: AFLIBERCEPT
     Dosage: UNK-15TH DOSE,40 MG/ML
  16. EYLEA [Suspect]
     Active Substance: AFLIBERCEPT
     Dosage: UNK-16TH DOSE,40 MG/ML
  17. EYLEA [Suspect]
     Active Substance: AFLIBERCEPT
     Dosage: UNK-17TH DOSE,40 MG/ML
  18. EYLEA [Suspect]
     Active Substance: AFLIBERCEPT
     Dosage: UNK-18TH DOSE, 40 MG/ML
  19. EYLEA [Suspect]
     Active Substance: AFLIBERCEPT
     Dosage: UNK-19TH DOSE, 40 MG/ML
  20. EYLEA [Suspect]
     Active Substance: AFLIBERCEPT
     Dosage: UNK-20TH DOSE, 40 MG/ML

REACTIONS (1)
  - Macular thickening [Unknown]
